FAERS Safety Report 4620429-6 (Version None)
Quarter: 2005Q1

REPORT INFORMATION
  Report Type: 
  Country: None (occurrence: None)
  Receive Date: 20050324
  Receipt Date: 20050310
  Transmission Date: 20050727
  Serious: Yes (Other)
  Sender: FDA-Public Use
  Company Number: HQWYE056711MAR05

PATIENT
  Age: 56 Year
  Sex: Female

DRUGS (1)
  1. INDERAL [Suspect]
     Indication: PALPITATIONS
     Dosage: 10 MG DAILY ^ON FOUR OCCASIONS FOR PALPITATIONS^ ORAL
     Route: 048
     Dates: start: 20040927, end: 20041028

REACTIONS (2)
  - HYPOAESTHESIA [None]
  - HYPOAESTHESIA ORAL [None]
